FAERS Safety Report 8023803-3 (Version None)
Quarter: 2011Q4

REPORT INFORMATION
  Report Type: 
  Country: None (occurrence: None)
  Receive Date: 20111130
  Receipt Date: 20110307
  Transmission Date: 20120403
  Serious: Yes (Hospitalization)
  Sender: FDA-Public Use
  Company Number: 321189

PATIENT
  Age: 55 Year
  Sex: Female
  Weight: 90.7 kg

DRUGS (9)
  1. CELEXA [Concomitant]
  2. WELLBUTRIN XL [Concomitant]
  3. VALTREX [Concomitant]
  4. ZOCOR [Concomitant]
  5. ASPIRIN [Concomitant]
  6. LOTENSIN /00498401/ (CAPTOPRIL) [Concomitant]
  7. NOVOLOG [Suspect]
     Indication: TYPE 1 DIABETES MELLITUS
     Dosage: SUBCUTAN.-PUMP
     Route: 058
  8. SYNTHROID [Concomitant]
  9. ZOFRAN /00955301/ (ONDANSETRON) [Concomitant]

REACTIONS (2)
  - DRUG INEFFECTIVE [None]
  - BLOOD GLUCOSE DECREASED [None]
